FAERS Safety Report 16953087 (Version 1)
Quarter: 2019Q4

REPORT INFORMATION
  Report Type: Spontaneous
  Country: US (occurrence: US)
  Receive Date: 20191023
  Receipt Date: 20191023
  Transmission Date: 20200122
  Serious: Yes (Death, Life-Threatening)
  Sender: FDA-Public Use
  Company Number: US-CELGENEUS-USA-20191007076

PATIENT
  Age: 79 Year
  Sex: Male

DRUGS (44)
  1. ABRAXANE [Suspect]
     Active Substance: PACLITAXEL
     Dosage: 154 MILLIGRAM
     Route: 042
     Dates: start: 20190531, end: 20190531
  2. ABRAXANE [Suspect]
     Active Substance: PACLITAXEL
     Dosage: 154 MILLIGRAM
     Route: 042
     Dates: start: 20190614, end: 20190614
  3. DURVALUMAB. [Concomitant]
     Active Substance: DURVALUMAB
     Dosage: 1500 MILLIGRAM
     Route: 042
     Dates: start: 20190510, end: 20190510
  4. OLAPARIB. [Concomitant]
     Active Substance: OLAPARIB
     Indication: NON-SMALL CELL LUNG CANCER STAGE IV
     Dosage: 600 MILLIGRAM
     Route: 048
     Dates: start: 20190628, end: 20190711
  5. CARBOPLATIN. [Concomitant]
     Active Substance: CARBOPLATIN
     Dosage: 365 MILLIGRAM
     Route: 042
     Dates: start: 20190531, end: 20190531
  6. NIACIN. [Concomitant]
     Active Substance: NIACIN
     Indication: PROPHYLAXIS
     Dosage: 50 MILLIGRAM
     Route: 048
     Dates: start: 2009
  7. IRBESARTAN. [Concomitant]
     Active Substance: IRBESARTAN
     Indication: HYPERTENSION
  8. ABRAXANE [Suspect]
     Active Substance: PACLITAXEL
     Dosage: 192 MILLIGRAM/SQ. METER
     Route: 042
     Dates: start: 20190329, end: 20190329
  9. DURVALUMAB. [Concomitant]
     Active Substance: DURVALUMAB
     Dosage: 1500 MILLIGRAM
     Route: 042
     Dates: start: 20190419, end: 20190419
  10. LIPITOR [Concomitant]
     Active Substance: ATORVASTATIN CALCIUM
     Indication: CORONARY ARTERY DISEASE
     Dosage: 80 MILLIGRAM
     Route: 048
     Dates: start: 2004
  11. SPIRONOLACTONE/HCTZ [Concomitant]
     Active Substance: HYDROCHLOROTHIAZIDE\SPIRONOLACTONE
     Indication: HYPERTENSION
     Dosage: 25 MILLIGRAM
     Route: 048
     Dates: start: 2009
  12. FLUTICASONE. [Concomitant]
     Active Substance: FLUTICASONE
     Indication: SEASONAL ALLERGY
     Route: 055
     Dates: start: 20190225
  13. CARBOPLATIN. [Concomitant]
     Active Substance: CARBOPLATIN
     Dosage: 456 MILLIGRAM
     Route: 042
     Dates: start: 20190419, end: 20190419
  14. ASPIRIN. [Concomitant]
     Active Substance: ASPIRIN
     Indication: PROPHYLAXIS
     Dosage: 325 MILLIGRAM
     Route: 048
     Dates: start: 2011
  15. MAGNESIUM CHLORIDE ANHYDROUS [Concomitant]
     Active Substance: MAGNESIUM CHLORIDE ANHYDROUS
     Indication: HYPOMAGNESAEMIA
     Dosage: 71.5 MILLIGRAM
     Route: 048
     Dates: start: 20190513
  16. ABRAXANE [Suspect]
     Active Substance: PACLITAXEL
     Dosage: 192 MILLIGRAM
     Route: 042
     Dates: start: 20190426, end: 20190426
  17. ABRAXANE [Suspect]
     Active Substance: PACLITAXEL
     Dosage: 154 MILLIGRAM
     Route: 042
     Dates: start: 20190510, end: 20190510
  18. ABRAXANE [Suspect]
     Active Substance: PACLITAXEL
     Dosage: 154 MILLIGRAM
     Route: 042
     Dates: start: 20190517, end: 20190517
  19. CARBOPLATIN. [Concomitant]
     Active Substance: CARBOPLATIN
     Indication: NON-SMALL CELL LUNG CANCER STAGE IV
     Dosage: 456 MILLIGRAM
     Route: 042
     Dates: start: 20190322, end: 20190322
  20. TAMSULOSIN HYDROCHLORIDE. [Concomitant]
     Active Substance: TAMSULOSIN HYDROCHLORIDE
     Indication: BENIGN PROSTATIC HYPERPLASIA
     Dosage: .4 MILLIGRAM
     Route: 048
     Dates: start: 2004
  21. GLIMEPIRIDE. [Concomitant]
     Active Substance: GLIMEPIRIDE
     Indication: DIABETES MELLITUS
     Dosage: 12 MILLIGRAM
     Route: 048
     Dates: start: 2016
  22. PRILOSEC [Concomitant]
     Active Substance: OMEPRAZOLE MAGNESIUM
     Indication: GASTROOESOPHAGEAL REFLUX DISEASE
  23. WARFARIN [Concomitant]
     Active Substance: WARFARIN
     Indication: PROPHYLAXIS
     Dosage: 1 MILLIGRAM
     Route: 048
     Dates: start: 20190422
  24. ABRAXANE [Suspect]
     Active Substance: PACLITAXEL
     Dosage: 192 MILLIGRAM
     Route: 042
     Dates: start: 20190405, end: 20190405
  25. ABRAXANE [Suspect]
     Active Substance: PACLITAXEL
     Dosage: 192 MILLIGRAM
     Route: 042
     Dates: start: 20190419, end: 20190419
  26. DURVALUMAB. [Concomitant]
     Active Substance: DURVALUMAB
     Dosage: 1500 MILLIGRAM
     Route: 042
     Dates: start: 20190628, end: 20190628
  27. METFORMIN HYDROCHLORIDE. [Concomitant]
     Active Substance: METFORMIN HYDROCHLORIDE
     Indication: DIABETES MELLITUS
     Dosage: 500 MILLIGRAM
     Route: 048
     Dates: start: 2004
  28. PRILOSEC [Concomitant]
     Active Substance: OMEPRAZOLE MAGNESIUM
     Indication: GASTROOESOPHAGEAL REFLUX DISEASE
     Dosage: 20 MILLIGRAM
     Route: 048
     Dates: start: 2011
  29. AZITHROMYCIN ANHYDROUS. [Concomitant]
     Active Substance: AZITHROMYCIN ANHYDROUS
     Indication: PROPHYLAXIS
  30. NIFEDIPINE. [Concomitant]
     Active Substance: NIFEDIPINE
     Indication: HYPERTENSION
     Dosage: 30 MILLIGRAM
     Route: 048
     Dates: start: 20190312
  31. PREDNISONE. [Concomitant]
     Active Substance: PREDNISONE
     Indication: FATIGUE
     Dosage: 10 MILLIGRAM
     Route: 048
     Dates: start: 20190621
  32. AZITHROMYCIN ANHYDROUS. [Concomitant]
     Active Substance: AZITHROMYCIN ANHYDROUS
     Indication: PROPHYLAXIS
     Dosage: 250 MILLIGRAM
     Route: 048
     Dates: start: 20180702
  33. ISOSORBIDE MONONITRATE. [Concomitant]
     Active Substance: ISOSORBIDE MONONITRATE
     Indication: CORONARY ARTERY DISEASE
     Dosage: 30 MILLIGRAM
     Route: 048
     Dates: start: 20190225
  34. ANORO ELLIPTA [Concomitant]
     Active Substance: UMECLIDINIUM BROMIDE\VILANTEROL TRIFENATATE
     Indication: CHRONIC OBSTRUCTIVE PULMONARY DISEASE
     Route: 055
     Dates: start: 20190225
  35. CENTRUM MULTIVITAMIN [Concomitant]
     Indication: PROPHYLAXIS
     Route: 048
  36. ABRAXANE [Suspect]
     Active Substance: PACLITAXEL
     Indication: NON-SMALL CELL LUNG CANCER STAGE IV
     Dosage: 192 MILLIGRAM/SQ. METER
     Route: 042
     Dates: start: 20190322, end: 20190322
  37. ABRAXANE [Suspect]
     Active Substance: PACLITAXEL
     Dosage: 154 MILLIGRAM
     Route: 042
     Dates: start: 20190524, end: 20190524
  38. DURVALUMAB. [Concomitant]
     Active Substance: DURVALUMAB
     Dosage: 1500 MILLIGRAM
     Route: 042
     Dates: start: 20190531, end: 20190531
  39. IRBESARTAN. [Concomitant]
     Active Substance: IRBESARTAN
     Indication: HYPERTENSION
     Dosage: 300 MILLIGRAM
     Route: 048
     Dates: start: 2009
  40. ABRAXANE [Suspect]
     Active Substance: PACLITAXEL
     Dosage: 154 MILLIGRAM
     Route: 042
     Dates: start: 20190607, end: 20190607
  41. DURVALUMAB. [Concomitant]
     Active Substance: DURVALUMAB
     Indication: NON-SMALL CELL LUNG CANCER STAGE IV
     Dosage: 1500 MILLIGRAM
     Route: 042
     Dates: start: 20190322, end: 20190322
  42. CARBOPLATIN. [Concomitant]
     Active Substance: CARBOPLATIN
     Dosage: 365 MILLIGRAM
     Route: 042
     Dates: start: 20190510, end: 20190510
  43. LOMOTIL [Concomitant]
     Active Substance: ATROPINE SULFATE\DIPHENOXYLATE HYDROCHLORIDE
     Indication: DIARRHOEA
     Route: 048
     Dates: start: 20190405
  44. PROCHLORPERAZINE EDISYLATE. [Concomitant]
     Active Substance: PROCHLORPERAZINE EDISYLATE
     Indication: NAUSEA
     Dosage: 10 MILLIGRAM
     Route: 048
     Dates: start: 20190415

REACTIONS (1)
  - Malignant neoplasm progression [Fatal]

NARRATIVE: CASE EVENT DATE: 20191008
